FAERS Safety Report 5102686-5 (Version None)
Quarter: 2006Q3

REPORT INFORMATION
  Report Type: 
  Country: None (occurrence: None)
  Receive Date: 20060912
  Receipt Date: 20060905
  Transmission Date: 20061208
  Serious: Yes (Death, Hospitalization)
  Sender: FDA-Public Use
  Company Number: US-JNJFOC-20060901719

PATIENT
  Age: 45 Year
  Sex: Female

DRUGS (2)
  1. ACETAMINOPHEN [Suspect]
     Indication: ABDOMINAL PAIN
     Route: 048
  2. ACETAMINOPHEN [Suspect]
     Indication: JAW OPERATION
     Dosage: 3000-4000 MG/ DAY FOR 5-6 WEEKS
     Route: 048

REACTIONS (6)
  - BLOOD AMYLASE INCREASED [None]
  - DRUG TOXICITY [None]
  - HAEMATEMESIS [None]
  - HAEMATOCHEZIA [None]
  - HEPATIC FUNCTION ABNORMAL [None]
  - MEDICATION ERROR [None]
